FAERS Safety Report 13187828 (Version 3)
Quarter: 2017Q2

REPORT INFORMATION
  Report Type: Spontaneous
  Country: US (occurrence: US)
  Receive Date: 20170206
  Receipt Date: 20170518
  Transmission Date: 20170830
  Serious: No
  Sender: FDA-Public Use
  Company Number: US-TEVA-733753ACC

PATIENT
  Age: 48 Year
  Sex: Male

DRUGS (8)
  1. FEXOFENADINE [Concomitant]
     Active Substance: FEXOFENADINE\FEXOFENADINE HYDROCHLORIDE
  2. ZETIA [Concomitant]
     Active Substance: EZETIMIBE
  3. ALLEGRA [Concomitant]
     Active Substance: FEXOFENADINE HYDROCHLORIDE
  4. SIMCOR [Concomitant]
     Active Substance: NIACIN\SIMVASTATIN
  5. COPAXONE [Suspect]
     Active Substance: GLATIRAMER ACETATE
     Indication: MULTIPLE SCLEROSIS
     Route: 058
  6. RAPAFLO [Concomitant]
     Active Substance: SILODOSIN
  7. FISH OIL [Concomitant]
     Active Substance: FISH OIL
  8. AMPYRA [Concomitant]
     Active Substance: DALFAMPRIDINE

REACTIONS (2)
  - Hypoaesthesia [Not Recovered/Not Resolved]
  - Fall [Recovered/Resolved]

NARRATIVE: CASE EVENT DATE: 20161129
